FAERS Safety Report 9382985 (Version 2)
Quarter: 2013Q3

REPORT INFORMATION
  Report Type: Spontaneous
  Country: US (occurrence: US)
  Receive Date: 20130703
  Receipt Date: 20130715
  Transmission Date: 20140515
  Serious: No
  Sender: FDA-Public Use
  Company Number: US-RB-055550-13

PATIENT
  Age: 27 Year
  Sex: Female

DRUGS (3)
  1. SUBUTEX [Suspect]
     Indication: DRUG DEPENDENCE
     Route: 065
     Dates: start: 2010, end: 2012
  2. SUBOXONE TABLETS [Suspect]
     Indication: DRUG DEPENDENCE
     Dosage: UNKNOWN DOSING DETAILS
     Route: 065
     Dates: end: 2010
  3. PROVENTIL [Concomitant]
     Indication: ASTHMA
     Route: 065
     Dates: start: 2001

REACTIONS (1)
  - Exposure during pregnancy [Recovered/Resolved]
